FAERS Safety Report 7466863-0 (Version None)
Quarter: 2011Q2

REPORT INFORMATION
  Report Type: 
  Country: None (occurrence: None)
  Receive Date: 20110509
  Receipt Date: 20110425
  Transmission Date: 20111010
  Serious: Yes (Hospitalization, Other)
  Sender: FDA-Public Use
  Company Number: PR-JNJFOC-20110411727

PATIENT
  Sex: Female
  Weight: 77.11 kg

DRUGS (5)
  1. IRON [Concomitant]
     Indication: MINERAL SUPPLEMENTATION
     Route: 048
  2. LEXAPRO [Concomitant]
     Indication: DEPRESSION
     Route: 048
  3. TOPAMAX [Suspect]
     Indication: EPILEPSY
     Route: 048
  4. LAMICTAL [Concomitant]
     Indication: EPILEPSY
     Route: 048
  5. KEPPRA [Concomitant]
     Indication: EPILEPSY
     Route: 048

REACTIONS (7)
  - SPEECH DISORDER [None]
  - ANAEMIA [None]
  - CONVULSION [None]
  - PRODUCT QUALITY ISSUE [None]
  - CERVICAL VERTEBRAL FRACTURE [None]
  - MEMORY IMPAIRMENT [None]
  - DRUG INEFFECTIVE [None]
